FAERS Safety Report 23827700 (Version 2)
Quarter: 2024Q2

REPORT INFORMATION
  Report Type: Spontaneous
  Country: US (occurrence: US)
  Receive Date: 20240507
  Receipt Date: 20240513
  Transmission Date: 20240716
  Serious: No
  Sender: FDA-Public Use
  Company Number: US-JNJFOC-20240489347

PATIENT

DRUGS (4)
  1. IBUPROFEN [Suspect]
     Active Substance: IBUPROFEN
     Indication: Bone pain
     Route: 065
  2. TYLENOL EXTRA STRENGTH [Concomitant]
     Active Substance: ACETAMINOPHEN
     Indication: Bone pain
     Route: 065
  3. LORATADINE [Concomitant]
     Active Substance: LORATADINE
     Indication: Pain
     Route: 065
  4. IBRANCE [Concomitant]
     Active Substance: PALBOCICLIB
     Indication: Product used for unknown indication
     Route: 065

REACTIONS (1)
  - Drug ineffective [Unknown]
